FAERS Safety Report 15122308 (Version 2)
Quarter: 2018Q4

REPORT INFORMATION
  Report Type: Spontaneous
  Country: ES (occurrence: ES)
  Receive Date: 20180709
  Receipt Date: 20181219
  Transmission Date: 20190204
  Serious: Yes (Other)
  Sender: FDA-Public Use
  Company Number: ES-MYLANLABS-2018M1048431

PATIENT
  Age: 55 Year
  Sex: Male

DRUGS (3)
  1. INTERFERON ALFA NOS [Concomitant]
     Active Substance: INTERFERON ALFA-2A OR INTERFERON ALFA-2B
     Indication: PRODUCT USED FOR UNKNOWN INDICATION
     Dosage: 3MILLION UNITS THREE TIMES PER WEEK
     Route: 065
     Dates: start: 200401
  2. IMATINIB. [Suspect]
     Active Substance: IMATINIB MESYLATE
     Indication: SYSTEMIC SCLERODERMA
     Dosage: 300 MILLIGRAM, QD
     Route: 065
  3. IMATINIB. [Suspect]
     Active Substance: IMATINIB MESYLATE
     Indication: CHRONIC MYELOID LEUKAEMIA
     Dosage: 400 MILLIGRAM, QD
     Route: 065
     Dates: start: 200210

REACTIONS (5)
  - Erythropoiesis abnormal [Unknown]
  - Neutropenia [Recovered/Resolved]
  - Chromosome analysis abnormal [Recovered/Resolved]
  - Anaemia [Recovered/Resolved]
  - Myelodysplastic syndrome [Recovered/Resolved]
